FAERS Safety Report 19076567 (Version 1)
Quarter: 2021Q1

REPORT INFORMATION
  Report Type: Report from Study
  Country: None (occurrence: US)
  Receive Date: 20210331
  Receipt Date: 20210331
  Transmission Date: 20210420
  Serious: Yes (Hospitalization, Other)
  Sender: FDA-Public Use
  Company Number: US-ABBVIE-21K-163-3833456-00

PATIENT
  Sex: Female

DRUGS (2)
  1. HUMIRA [Suspect]
     Active Substance: ADALIMUMAB
     Indication: HIDRADENITIS
     Dosage: 2 X 40MG INJECTIONS
     Route: 058
     Dates: start: 201907, end: 2020
  2. CHLOROQUINE. [Concomitant]
     Active Substance: CHLOROQUINE
     Indication: PRODUCT USED FOR UNKNOWN INDICATION
     Dosage: STOPPED TAKING IT AT THE SAME TIME AS HUMIRA.

REACTIONS (17)
  - Hyperthecosis [Recovered/Resolved]
  - Therapeutic product effect incomplete [Not Recovered/Not Resolved]
  - Wound secretion [Unknown]
  - Weight decreased [Not Recovered/Not Resolved]
  - Flatulence [Not Recovered/Not Resolved]
  - White blood cell count increased [Recovered/Resolved]
  - Abdominal hernia [Recovering/Resolving]
  - Skin lesion [Unknown]
  - Sepsis [Recovered/Resolved]
  - Stoma site pain [Not Recovered/Not Resolved]
  - Wound [Recovering/Resolving]
  - Abdominal abscess [Recovered/Resolved]
  - Wound complication [Unknown]
  - Large intestine perforation [Recovering/Resolving]
  - Illness [Recovering/Resolving]
  - Near death experience [Recovered/Resolved]
  - Faecal volume increased [Not Recovered/Not Resolved]
